FAERS Safety Report 6020849-1 (Version None)
Quarter: 2008Q4

REPORT INFORMATION
  Report Type: 
  Country: None (occurrence: None)
  Receive Date: 20081229
  Receipt Date: 20081218
  Transmission Date: 20090506
  Serious: Yes (Hospitalization)
  Sender: FDA-Public Use
  Company Number: NL-BAXTER-2008BH014136

PATIENT
  Age: 44 Year
  Sex: Female
  Weight: 69 kg

DRUGS (6)
  1. ENDOXAN BAXTER [Suspect]
     Indication: BREAST CANCER
     Dosage: 2DE TAC-KUUR
     Route: 065
  2. DOXORUBICIN HCL [Suspect]
     Indication: BREAST CANCER
     Dosage: 2DE TAC-KUUR
     Route: 042
  3. TAXOTERE [Suspect]
     Indication: BREAST CANCER
     Dosage: 2DE TAC-KUUR
     Route: 042
  4. NEULASTA [Concomitant]
     Dosage: TOEDIENING: 24-48 UUR NA TAC-KUUR
     Route: 058
     Dates: start: 20081119, end: 20081119
  5. ESOMEPRAZOLE MAGNESIUM [Concomitant]
     Dosage: 1DD40MG
     Route: 048
  6. DICLOFENAC SODIUM [Concomitant]
     Dosage: ZO NODIG
     Route: 065

REACTIONS (1)
  - NEUTROPENIC COLITIS [None]
